FAERS Safety Report 6343323-1 (Version None)
Quarter: 2009Q3

REPORT INFORMATION
  Report Type: 
  Country: None (occurrence: None)
  Receive Date: 20090908
  Receipt Date: 20090828
  Transmission Date: 20100115
  Serious: Yes (Other)
  Sender: FDA-Public Use
  Company Number: PHHY2009IT36653

PATIENT
  Sex: Male

DRUGS (3)
  1. ZOMETA [Suspect]
     Indication: LUNG ADENOCARCINOMA METASTATIC
     Dosage: 4 MG, QMO
     Route: 042
     Dates: start: 20060301, end: 20070731
  2. LYRICA [Concomitant]
     Dosage: 25 MG, UNK
     Route: 048
  3. CHEMOTHERAPEUTICS NOS [Concomitant]

REACTIONS (2)
  - MAXILLOFACIAL OPERATION [None]
  - OSTEOMYELITIS [None]
